FAERS Safety Report 7433926-5 (Version None)
Quarter: 2011Q2

REPORT INFORMATION
  Report Type: 
  Country: None (occurrence: None)
  Receive Date: 20110418
  Receipt Date: 20110408
  Transmission Date: 20111010
  Serious: Yes (Hospitalization, Other)
  Sender: FDA-Public Use
  Company Number: 115508

PATIENT
  Age: 60 Year
  Sex: Male

DRUGS (2)
  1. FLUMAZENIL [Concomitant]
  2. LORAZEPAM [Suspect]

REACTIONS (6)
  - COMA [None]
  - TOXICITY TO VARIOUS AGENTS [None]
  - DRUG INEFFECTIVE [None]
  - OVERDOSE [None]
  - MEDICATION ERROR [None]
  - VENTRICULAR TACHYCARDIA [None]
